FAERS Safety Report 5580328-2 (Version None)
Quarter: 2008Q1

REPORT INFORMATION
  Report Type: 
  Country: None (occurrence: None)
  Receive Date: 20080103
  Receipt Date: 20071224
  Transmission Date: 20080703
  Serious: Yes (Other)
  Sender: FDA-Public Use
  Company Number: GB-JNJFOC-20071106448

PATIENT
  Sex: Female
  Weight: 57 kg

DRUGS (1)
  1. SPORANOX [Suspect]
     Indication: DRUG USE FOR UNKNOWN INDICATION
     Route: 065

REACTIONS (3)
  - ABORTION THREATENED [None]
  - DRUG EXPOSURE DURING PREGNANCY [None]
  - VOMITING [None]
